FAERS Safety Report 6004484-7 (Version None)
Quarter: 2008Q4

REPORT INFORMATION
  Report Type: 
  Country: None (occurrence: None)
  Receive Date: 20081216
  Receipt Date: 20081205
  Transmission Date: 20090506
  Serious: Yes (Hospitalization)
  Sender: FDA-Public Use
  Company Number: FR-WYE-G02731508

PATIENT
  Sex: Female

DRUGS (7)
  1. EFFEXOR [Suspect]
     Indication: MAJOR DEPRESSION
     Dosage: 75 MG TOTAL DAILY
     Route: 048
     Dates: start: 20080901, end: 20081007
  2. EFFEXOR [Suspect]
     Dosage: PROGRESSIVELY INCREASED UP TO 187.5 MG TOTAL DAILY
     Route: 048
     Dates: start: 20081008, end: 20081023
  3. EFFEXOR [Suspect]
     Dosage: PROGRESSIVELY DECREASED UNTIL PERMANENT WITHDRAWAL
     Route: 048
     Dates: start: 20081024, end: 20081028
  4. TANAKAN [Concomitant]
     Dosage: UNKNOWN
     Route: 048
     Dates: end: 20081001
  5. TEMESTA [Concomitant]
     Dosage: 1.5 MG TOTAL DAILY
     Route: 048
  6. VALSARTAN [Concomitant]
     Dosage: 80 MG TOTAL DAILY
     Route: 048
  7. LOXEN [Concomitant]
     Route: 048

REACTIONS (8)
  - ANTIDEPRESSANT DRUG LEVEL DECREASED [None]
  - BLOOD ALKALINE PHOSPHATASE INCREASED [None]
  - CONDITION AGGRAVATED [None]
  - CYTOLYTIC HEPATITIS [None]
  - DEPRESSION [None]
  - FALL [None]
  - GAMMA-GLUTAMYLTRANSFERASE INCREASED [None]
  - HYPONATRAEMIA [None]
